FAERS Safety Report 4643740-1 (Version None)
Quarter: 2005Q2

REPORT INFORMATION
  Report Type: 
  Country: None (occurrence: None)
  Receive Date: 20050425
  Receipt Date: 20050419
  Transmission Date: 20051028
  Serious: Yes (Hospitalization, Other)
  Sender: FDA-Public Use
  Company Number: PHBS2005JP05738

PATIENT
  Age: 50 Year
  Sex: Female

DRUGS (5)
  1. SANDOSTATIN LAR [Suspect]
     Indication: ACROMEGALY
     Dosage: 20 MG, QMO
     Route: 030
     Dates: start: 20041101
  2. PREDONINE [Concomitant]
     Dosage: 2.5 MG/DAY
     Route: 048
  3. LOXONIN [Concomitant]
     Dosage: 120 MG/DAY
     Route: 048
  4. MARZULENE [Concomitant]
     Dosage: 2.68 MG/DAY
     Route: 048
  5. RENIVACE [Concomitant]
     Dosage: 5 MG/DAY
     Route: 048

REACTIONS (4)
  - ABDOMINAL DISTENSION [None]
  - ASTHENIA [None]
  - GASTROINTESTINAL MOTILITY DISORDER [None]
  - NERVOUSNESS [None]
